FAERS Safety Report 7266112-2 (Version None)
Quarter: 2011Q1

REPORT INFORMATION
  Report Type: 
  Country: None (occurrence: None)
  Receive Date: 20110131
  Receipt Date: 20110121
  Transmission Date: 20110831
  Serious: Yes (Life-Threatening, Hospitalization)
  Sender: FDA-Public Use
  Company Number: DE-BRISTOL-MYERS SQUIBB COMPANY-15247521

PATIENT
  Age: 73 Year
  Sex: Female
  Weight: 76 kg

DRUGS (7)
  1. BERODUAL [Concomitant]
     Route: 055
  2. DOXEPIN HCL [Concomitant]
  3. ABATACEPT [Suspect]
     Indication: RHEUMATOID ARTHRITIS
     Dosage: T0(12JAN09)750MG;T1(16APR2009)750MG; T2(09JUL2009) 750 MG; 3000 MG CUMULATIVE
     Dates: start: 20090112, end: 20090416
  4. PREDNISOLONE [Concomitant]
  5. LERCANIDIPINE [Concomitant]
  6. PRAVASTATIN SODIUM [Concomitant]
  7. CELEBREX [Concomitant]

REACTIONS (5)
  - WOUND DEHISCENCE [None]
  - DIVERTICULAR PERFORATION [None]
  - SEPSIS [None]
  - STAPHYLOCOCCAL INFECTION [None]
  - ENDOCARDITIS BACTERIAL [None]
